FAERS Safety Report 17705413 (Version 1)
Quarter: 2020Q2

REPORT INFORMATION
  Report Type: Spontaneous
  Country: FR (occurrence: FR)
  Receive Date: 20200424
  Receipt Date: 20200424
  Transmission Date: 20200714
  Serious: Yes (Hospitalization)
  Sender: FDA-Public Use
  Company Number: FR-TEVA-2020-FR-1226257

PATIENT
  Age: 32 Year
  Sex: Male

DRUGS (3)
  1. ASPIRINE [Suspect]
     Active Substance: ASPIRIN
     Indication: HEADACHE
     Dosage: UNSPECIFIED
     Route: 048
  2. PROFEMIGR 150 MG, COMPRIM? S?CABLE [Suspect]
     Active Substance: KETOPROFEN
     Indication: HEADACHE
     Dosage: 300 MG
     Route: 048
     Dates: start: 20171009, end: 20171015
  3. IBUPROFENE [Suspect]
     Active Substance: IBUPROFEN
     Indication: HEADACHE
     Dosage: UNSPECIFIED
     Route: 048

REACTIONS (3)
  - Fusobacterium infection [Recovered/Resolved]
  - Streptococcal infection [Recovered/Resolved]
  - Brain abscess [Recovered/Resolved]

NARRATIVE: CASE EVENT DATE: 20171016
